FAERS Safety Report 5869190-8 (Version None)
Quarter: 2008Q3

REPORT INFORMATION
  Report Type: 
  Country: None (occurrence: None)
  Receive Date: 20080827
  Receipt Date: 20080703
  Transmission Date: 20090109
  Serious: Yes (Hospitalization)
  Sender: FDA-Public Use
  Company Number: PHEH2008US05977

PATIENT

DRUGS (1)
  1. RECLAST [Suspect]
     Dosage: 5 MG, 1X YEAR, INFUSION

REACTIONS (3)
  - BONE PAIN [None]
  - OEDEMA [None]
  - SWELLING [None]
